FAERS Safety Report 8106054-3 (Version None)
Quarter: 2012Q1

REPORT INFORMATION
  Report Type: 
  Country: None (occurrence: None)
  Receive Date: 20120202
  Receipt Date: 20120121
  Transmission Date: 20120608
  Serious: Yes (Death, Hospitalization, Other)
  Sender: FDA-Public Use
  Company Number: US-PAR PHARMACEUTICAL, INC-2012SCPR003930

PATIENT

DRUGS (6)
  1. ATOVAQUONE [Concomitant]
     Indication: PNEUMOCYSTIS JIROVECI PNEUMONIA
     Dosage: UNK, UNKNOWN
     Route: 065
  2. CLINDAMYCIN [Concomitant]
     Indication: TOXOPLASMOSIS
     Dosage: UNK, UNKNOWN
     Route: 065
  3. PYRIMETHAMINE TAB [Concomitant]
     Indication: TOXOPLASMOSIS
     Dosage: UNK, UNKNOWN
     Route: 065
  4. DEXAMETHASONE [Suspect]
     Indication: BRAIN OEDEMA
     Dosage: UNK, UNKNOWN
     Route: 065
  5. DAPSONE [Suspect]
     Indication: PNEUMOCYSTIS JIROVECI PNEUMONIA
     Dosage: UNK, UNKNOWN
     Route: 065
  6. INSULIN [Concomitant]
     Indication: BLOOD GLUCOSE ABNORMAL
     Dosage: UNK, UNKNOWN
     Route: 058

REACTIONS (6)
  - ZYGOMYCOSIS [None]
  - RESPIRATORY DISORDER [None]
  - PANCYTOPENIA [None]
  - DEATH [None]
  - MENTAL IMPAIRMENT [None]
  - HAEMODYNAMIC INSTABILITY [None]
